FAERS Safety Report 21021598 (Version 1)
Quarter: 2022Q2

REPORT INFORMATION
  Report Type: Spontaneous
  Country: CA (occurrence: CA)
  Receive Date: 20220629
  Receipt Date: 20220629
  Transmission Date: 20220721
  Serious: Yes (Other)
  Sender: FDA-Public Use
  Company Number: CA-SAMSUNG BIOEPIS-SB-2022-15337

PATIENT
  Age: 60 Year
  Sex: Female
  Weight: 56 kg

DRUGS (2)
  1. INFLIXIMAB [Suspect]
     Active Substance: INFLIXIMAB
     Indication: Crohn^s disease
     Route: 042
  2. DIPHENHYDRAMINE [Concomitant]
     Active Substance: DIPHENHYDRAMINE
     Indication: Premedication
     Route: 048

REACTIONS (20)
  - Anal fissure [Not Recovered/Not Resolved]
  - Anal fistula [Not Recovered/Not Resolved]
  - Blood pressure fluctuation [Not Recovered/Not Resolved]
  - Chest discomfort [Recovered/Resolved]
  - Chills [Recovered/Resolved]
  - Condition aggravated [Not Recovered/Not Resolved]
  - Cyanosis [Recovered/Resolved]
  - Dyspnoea [Recovered/Resolved]
  - Ear discomfort [Not Recovered/Not Resolved]
  - Ear inflammation [Not Recovered/Not Resolved]
  - Ear pain [Not Recovered/Not Resolved]
  - Ear pruritus [Not Recovered/Not Resolved]
  - Ear swelling [Not Recovered/Not Resolved]
  - Headache [Not Recovered/Not Resolved]
  - Hypersensitivity [Not Recovered/Not Resolved]
  - Infusion related reaction [Recovered/Resolved]
  - Oxygen saturation abnormal [Not Recovered/Not Resolved]
  - Tremor [Recovered/Resolved]
  - Weight increased [Not Recovered/Not Resolved]
  - Incorrect dose administered [Not Recovered/Not Resolved]
